FAERS Safety Report 4614855-9 (Version None)
Quarter: 2005Q1

REPORT INFORMATION
  Report Type: 
  Country: None (occurrence: None)
  Receive Date: 20050318
  Receipt Date: 20050318
  Transmission Date: 20050727
  Serious: Yes (Life-Threatening, Hospitalization)
  Sender: FDA-Public Use
  Company Number: None

PATIENT
  Age: 55 Year
  Sex: Male

DRUGS (16)
  1. HEPARIN FLUSH IV [Suspect]
     Route: 042
     Dates: start: 20041229, end: 20050107
  2. OMEPRAZOLE [Concomitant]
  3. ENALAPRIL MALEATE [Concomitant]
  4. TEMAZEPAM [Concomitant]
  5. LASIX [Concomitant]
  6. DIGOXIN [Concomitant]
  7. NORTRIPTYLINE HCL [Concomitant]
  8. MEGACE 400 MG [Concomitant]
  9. COUMADIN [Concomitant]
  10. ZOLOFT [Concomitant]
  11. SIMVASTATIN [Concomitant]
  12. ASPIRIN [Concomitant]
  13. COLACE 250 MG [Concomitant]
  14. REGLAN [Concomitant]
  15. METOPROLOL TARTRATE [Concomitant]
  16. GLYBURIDE [Concomitant]

REACTIONS (4)
  - PERIPHERAL EMBOLISM [None]
  - PLATELET COUNT DECREASED [None]
  - PULMONARY EMBOLISM [None]
  - TOE AMPUTATION [None]
